FAERS Safety Report 5238545-7 (Version None)
Quarter: 2007Q1

REPORT INFORMATION
  Report Type: 
  Country: None (occurrence: None)
  Receive Date: 20070215
  Receipt Date: 20070207
  Transmission Date: 20070707
  Serious: Yes (Other)
  Sender: FDA-Public Use
  Company Number: 200606047/ TAG00134A

PATIENT
  Age: 60 Year
  Sex: Male

DRUGS (1)
  1. TAGAMET [Suspect]

REACTIONS (2)
  - DELUSION [None]
  - HALLUCINATION [None]
